FAERS Safety Report 16042291 (Version 1)
Quarter: 2019Q1

REPORT INFORMATION
  Report Type: Spontaneous
  Country: US (occurrence: US)
  Receive Date: 20190306
  Receipt Date: 20190306
  Transmission Date: 20190418
  Serious: No
  Sender: FDA-Public Use
  Company Number: US-AKORN PHARMACEUTICALS-2018AKN01171

PATIENT
  Age: 44 Year
  Sex: Female

DRUGS (4)
  1. UNSPECIFIED THYROID MEDICATION [Concomitant]
     Active Substance: UNSPECIFIED INGREDIENT
  2. ESTRADIOL. [Concomitant]
     Active Substance: ESTRADIOL
  3. MYORISAN [Suspect]
     Active Substance: ISOTRETINOIN
     Indication: ALOPECIA
     Dosage: 40 MG, 1X/DAY
     Route: 048
     Dates: start: 20180104, end: 201805
  4. PROGESTERONE. [Concomitant]
     Active Substance: PROGESTERONE

REACTIONS (3)
  - Alopecia [Recovered/Resolved]
  - Drug ineffective for unapproved indication [Not Recovered/Not Resolved]
  - Off label use [Recovered/Resolved]

NARRATIVE: CASE EVENT DATE: 20180104
